FAERS Safety Report 10495863 (Version 14)
Quarter: 2014Q4

REPORT INFORMATION
  Report Type: Spontaneous
  Country: US (occurrence: US)
  Receive Date: 20141003
  Receipt Date: 20141226
  Transmission Date: 20150528
  Serious: Yes (Hospitalization)
  Sender: FDA-Public Use
  Company Number: US-ACTELION-A-NJ2014-106080

PATIENT
  Age: 60 Year
  Sex: Female

DRUGS (5)
  1. COUMADIN [Concomitant]
     Active Substance: WARFARIN SODIUM
  2. VENTAVIS [Suspect]
     Active Substance: ILOPROST
     Indication: PULMONARY ARTERIAL HYPERTENSION
     Dosage: 5 MCG, 6-9 X/DAILY
     Route: 055
     Dates: start: 20100505
  3. ASPIRIN. [Concomitant]
     Active Substance: ASPIRIN
  4. REVATIO [Concomitant]
     Active Substance: SILDENAFIL CITRATE
  5. TRACLEER [Suspect]
     Active Substance: BOSENTAN\BOSENTAN MONOHYDRATE
     Indication: PULMONARY ARTERIAL HYPERTENSION
     Dosage: UNK UNK, BID
     Route: 048
     Dates: start: 20091223

REACTIONS (15)
  - Loss of consciousness [Unknown]
  - Thrombosis [Unknown]
  - Hypotension [Unknown]
  - Malaise [Unknown]
  - Drug administration error [Unknown]
  - Presyncope [Unknown]
  - Pulmonary embolism [Unknown]
  - Dyspnoea [Recovering/Resolving]
  - Asthenia [Unknown]
  - Myocardial infarction [Unknown]
  - Haemorrhage [Unknown]
  - Heart rate increased [Unknown]
  - Pain [Unknown]
  - Drug dose omission [Unknown]
  - Incontinence [Unknown]

NARRATIVE: CASE EVENT DATE: 20140917
